FAERS Safety Report 25665205 (Version 1)
Quarter: 2025Q3

REPORT INFORMATION
  Report Type: Spontaneous
  Country: US (occurrence: US)
  Receive Date: 20250811
  Receipt Date: 20250811
  Transmission Date: 20251021
  Serious: No
  Sender: ROCHE
  Company Number: US-ROCHE-10000358197

PATIENT

DRUGS (5)
  1. XOLAIR [Suspect]
     Active Substance: OMALIZUMAB
     Indication: Chronic spontaneous urticaria
     Route: 065
  2. PREDNISONE [Concomitant]
     Active Substance: PREDNISONE
     Indication: Urticaria
  3. CYCLOSPORINE [Concomitant]
     Active Substance: CYCLOSPORINE
  4. DUPIXENT [Concomitant]
     Active Substance: DUPILUMAB
  5. RINVOQ [Concomitant]
     Active Substance: UPADACITINIB

REACTIONS (3)
  - Autonomic nervous system imbalance [Unknown]
  - Urticaria [Unknown]
  - Drug ineffective [Unknown]
